FAERS Safety Report 7453553-3 (Version None)
Quarter: 2011Q2

REPORT INFORMATION
  Report Type: 
  Country: None (occurrence: None)
  Receive Date: 20110502
  Receipt Date: 20110225
  Transmission Date: 20111010
  Serious: No
  Sender: FDA-Public Use
  Company Number: US-ASTRAZENECA-2011SE11021

PATIENT
  Sex: Female

DRUGS (5)
  1. VITAMIN E [Concomitant]
  2. PRAVASTATIN [Concomitant]
  3. NEXIUM [Suspect]
     Route: 048
  4. CELEXA [Concomitant]
  5. FISH OIL [Concomitant]

REACTIONS (3)
  - GASTRIC DISORDER [None]
  - DRUG DOSE OMISSION [None]
  - DYSPEPSIA [None]
